FAERS Safety Report 5623891-5 (Version None)
Quarter: 2008Q1

REPORT INFORMATION
  Report Type: 
  Country: None (occurrence: None)
  Receive Date: 20080207
  Receipt Date: 20080128
  Transmission Date: 20080703
  Serious: Yes (Hospitalization)
  Sender: FDA-Public Use
  Company Number: CERZ-1000004

PATIENT
  Age: 12 Year
  Sex: Male
  Weight: 53.5 kg

DRUGS (4)
  1. CEREZYME [Suspect]
     Indication: GAUCHER'S DISEASE
     Dosage: 37 U/KG, Q2W, INTRAVENOUS
     Route: 042
     Dates: start: 20010101, end: 20070901
  2. CEREZYME [Suspect]
     Indication: GAUCHER'S DISEASE
     Dosage: 37 U/KG, Q2W, INTRAVENOUS
     Route: 042
     Dates: start: 20071201
  3. ZAVESCA [Suspect]
     Indication: GAUCHER'S DISEASE
  4. BECONASE [Concomitant]

REACTIONS (6)
  - CONVULSION [None]
  - GAIT DISTURBANCE [None]
  - GENERAL PHYSICAL HEALTH DETERIORATION [None]
  - NEUROLOGICAL SYMPTOM [None]
  - SPEECH DISORDER [None]
  - TREMOR [None]
